FAERS Safety Report 19048349 (Version 1)
Quarter: 2021Q1

REPORT INFORMATION
  Report Type: Spontaneous
  Country: CN (occurrence: CN)
  Receive Date: 20210323
  Receipt Date: 20210323
  Transmission Date: 20210420
  Serious: Yes (Other)
  Sender: FDA-Public Use
  Company Number: CN-ELI_LILLY_AND_COMPANY-CN202103005531

PATIENT
  Age: 48 Year
  Sex: Male
  Weight: 72.8 kg

DRUGS (4)
  1. CISPLATIN. [Suspect]
     Active Substance: CISPLATIN
     Indication: NEOPLASM MALIGNANT
     Dosage: 50 MG, UNKNOWN
     Route: 041
     Dates: start: 20210203, end: 20210205
  2. SODIUM CHLORIDE. [Concomitant]
     Active Substance: SODIUM CHLORIDE
     Indication: MEDICATION DILUTION
     Dosage: 100 ML,  D1 AND D8
     Route: 041
     Dates: start: 20210203, end: 20210210
  3. GEMZAR [Suspect]
     Active Substance: GEMCITABINE HYDROCHLORIDE
     Indication: NEOPLASM MALIGNANT
     Dosage: 1800 MG, D1 AND D8
     Route: 041
     Dates: start: 20210203, end: 20210210
  4. SODIUM CHLORIDE. [Concomitant]
     Active Substance: SODIUM CHLORIDE
     Dosage: 250 ML, UNKNOWN
     Route: 041
     Dates: start: 20210203, end: 20210205

REACTIONS (4)
  - Red blood cell count decreased [Recovering/Resolving]
  - Platelet count increased [Recovering/Resolving]
  - Platelet count decreased [Recovering/Resolving]
  - White blood cell count decreased [Recovering/Resolving]

NARRATIVE: CASE EVENT DATE: 20210218
